FAERS Safety Report 6322668-5 (Version None)
Quarter: 2009Q3

REPORT INFORMATION
  Report Type: 
  Country: None (occurrence: None)
  Receive Date: 20090824
  Receipt Date: 20090218
  Transmission Date: 20100115
  Serious: No
  Sender: FDA-Public Use
  Company Number: US-ABBOTT-09P-163-0558312-00

PATIENT
  Sex: Female
  Weight: 81.266 kg

DRUGS (3)
  1. NIASPAN [Suspect]
     Indication: BLOOD CHOLESTEROL INCREASED
     Dates: start: 20090217, end: 20090217
  2. PAXIL [Concomitant]
     Indication: ANXIETY
     Dates: start: 20090101
  3. LISINOPRIL [Concomitant]
     Indication: HYPERTENSION
     Dates: start: 20090101

REACTIONS (3)
  - ERYTHEMA [None]
  - PARAESTHESIA [None]
  - SKIN SWELLING [None]
